FAERS Safety Report 10510487 (Version 2)
Quarter: 2014Q4

REPORT INFORMATION
  Report Type: Spontaneous
  Country: US (occurrence: US)
  Receive Date: 20141010
  Receipt Date: 20141021
  Transmission Date: 20150528
  Serious: No
  Sender: FDA-Public Use
  Company Number: US-PFIZER INC-2014274823

PATIENT
  Age: 57 Year
  Sex: Male
  Weight: 100 kg

DRUGS (1)
  1. DEPO-MEDROL [Suspect]
     Active Substance: METHYLPREDNISOLONE ACETATE
     Indication: BACK PAIN
     Dosage: TOTAL OF 8 INJECTIONS OVER 2 YEARS
     Route: 008
     Dates: start: 2012, end: 20140920

REACTIONS (5)
  - Drug ineffective [Unknown]
  - Headache [Recovered/Resolved]
  - Abdominal discomfort [Recovered/Resolved]
  - Incorrect route of drug administration [Unknown]
  - Back pain [Unknown]

NARRATIVE: CASE EVENT DATE: 2012
